FAERS Safety Report 5560192-8 (Version None)
Quarter: 2007Q4

REPORT INFORMATION
  Report Type: 
  Country: None (occurrence: None)
  Receive Date: 20071214
  Receipt Date: 20071102
  Transmission Date: 20080405
  Serious: No
  Sender: FDA-Public Use
  Company Number: US-ABBOTT-07P-163-0423517-00

PATIENT
  Sex: Female
  Weight: 48.124 kg

DRUGS (9)
  1. HUMIRA [Suspect]
     Indication: RHEUMATOID ARTHRITIS
     Route: 058
     Dates: start: 20040625
  2. PREDNISONE [Concomitant]
     Indication: RHEUMATOID ARTHRITIS
  3. VITAMIN E [Concomitant]
     Indication: VITAMIN SUPPLEMENTATION
  4. ASCORBIC ACID [Concomitant]
     Indication: VITAMIN SUPPLEMENTATION
  5. CALCIUM [Concomitant]
     Indication: MINERAL SUPPLEMENTATION
  6. GLUCOSAMINE [Concomitant]
     Indication: DRUG USE FOR UNKNOWN INDICATION
  7. NAPROSYN [Concomitant]
     Indication: RHEUMATOID ARTHRITIS
  8. ATENOLOL [Concomitant]
     Indication: HYPERTENSION
  9. PAIN MEDICATION [Concomitant]
     Indication: RHEUMATOID ARTHRITIS

REACTIONS (8)
  - AGEUSIA [None]
  - BRONCHITIS [None]
  - HERPES ZOSTER [None]
  - INJECTION SITE ERYTHEMA [None]
  - INJECTION SITE REACTION [None]
  - RASH PRURITIC [None]
  - SINUSITIS [None]
  - WEIGHT DECREASED [None]
